FAERS Safety Report 4595747-0 (Version None)
Quarter: 2005Q1

REPORT INFORMATION
  Report Type: 
  Country: None (occurrence: None)
  Receive Date: 20050224
  Receipt Date: 20050224
  Transmission Date: 20050727
  Serious: No
  Sender: FDA-Public Use
  Company Number: None

PATIENT
  Age: 37 Year
  Sex: Male
  Weight: 81.6475 kg

DRUGS (2)
  1. ZOLOFT [Suspect]
     Indication: MAJOR DEPRESSION
     Dosage: 50MG  2XDAILY ORAL
     Route: 048
     Dates: start: 20050205, end: 20050221
  2. ZOLOFT [Suspect]
     Indication: SUICIDAL IDEATION
     Dosage: 50MG  2XDAILY ORAL
     Route: 048
     Dates: start: 20050205, end: 20050221

REACTIONS (6)
  - ABNORMAL DREAMS [None]
  - BIPOLAR DISORDER [None]
  - PANIC ATTACK [None]
  - PSYCHOMOTOR HYPERACTIVITY [None]
  - PSYCHOTIC DISORDER [None]
  - SOMNOLENCE [None]
